FAERS Safety Report 25819211 (Version 3)
Quarter: 2025Q4

REPORT INFORMATION
  Report Type: Spontaneous
  Country: US (occurrence: US)
  Receive Date: 20250918
  Receipt Date: 20251016
  Transmission Date: 20260118
  Serious: No
  Sender: SANOFI AVENTIS
  Company Number: US-SA-2025SA278779

PATIENT
  Age: 29 Year
  Sex: Male
  Weight: 54.55 kg

DRUGS (4)
  1. DUPIXENT [Suspect]
     Active Substance: DUPILUMAB
     Indication: Dermatitis atopic
     Dosage: 300 MG, QOW
     Route: 058
  2. VITAMINS [Concomitant]
     Active Substance: VITAMINS
  3. CITALOPRAM [Concomitant]
     Active Substance: CITALOPRAM
  4. CIBINQO [Concomitant]
     Active Substance: ABROCITINIB

REACTIONS (1)
  - Product storage error [Unknown]
